FAERS Safety Report 15704170 (Version 2)
Quarter: 2019Q1

REPORT INFORMATION
  Report Type: Spontaneous
  Country: US (occurrence: US)
  Receive Date: 20181210
  Receipt Date: 20190104
  Transmission Date: 20190417
  Serious: Yes (Hospitalization, Other)
  Sender: FDA-Public Use
  Company Number: US-PFIZER INC-2018502763

PATIENT
  Age: 55 Year
  Sex: Male

DRUGS (1)
  1. LYRICA [Suspect]
     Active Substance: PREGABALIN
     Indication: NEUROPATHY PERIPHERAL
     Dosage: 75 MG, 2X/DAY (2 TIMES A DAY, ABOUT 3 WEEKS AGO)
     Dates: start: 201811

REACTIONS (3)
  - Neuralgia [Recovering/Resolving]
  - Pain [Recovering/Resolving]
  - Spinal cord injury [Unknown]
